FAERS Safety Report 13378426 (Version 2)
Quarter: 2017Q2

REPORT INFORMATION
  Report Type: Spontaneous
  Country: FR (occurrence: FR)
  Receive Date: 20170328
  Receipt Date: 20170411
  Transmission Date: 20170830
  Serious: Yes (Hospitalization)
  Sender: FDA-Public Use
  Company Number: FR-PFIZER INC-2017123976

PATIENT
  Age: 63 Year
  Sex: Male

DRUGS (13)
  1. LYRICA [Suspect]
     Active Substance: PREGABALIN
     Indication: PROCEDURAL PAIN
     Dosage: UNK
     Route: 048
     Dates: start: 20170302, end: 20170303
  2. AMIKACIN [Concomitant]
     Active Substance: AMIKACIN
     Indication: OSTEOMYELITIS
     Dosage: UNK
     Dates: start: 20170217, end: 20170224
  3. NORSET [Concomitant]
     Active Substance: MIRTAZAPINE
     Dosage: UNK
  4. SERESTA [Concomitant]
     Active Substance: OXAZEPAM
     Dosage: UNK
  5. IMIPENEM CILASTATINE MYLAN [Suspect]
     Active Substance: IMIPENEM
     Indication: OSTEOMYELITIS
     Dosage: UNK
     Route: 042
     Dates: start: 20170222, end: 20170307
  6. GALVUS [Concomitant]
     Active Substance: VILDAGLIPTIN
     Dosage: UNK
  7. RIFADINE [Suspect]
     Active Substance: RIFAMPIN
     Indication: OSTEOMYELITIS
     Dosage: 1200 MG, 1X/DAY
     Route: 042
     Dates: start: 20170301, end: 20170303
  8. ZAMUDOL [Suspect]
     Active Substance: TRAMADOL HYDROCHLORIDE
     Indication: PROCEDURAL PAIN
     Dosage: UNK
     Route: 048
     Dates: start: 20170302, end: 20170302
  9. LOVENOX [Concomitant]
     Active Substance: ENOXAPARIN SODIUM
     Dosage: UNK
  10. CRESTOR [Concomitant]
     Active Substance: ROSUVASTATIN CALCIUM
     Dosage: UNK
  11. VANCOMYCIN [Concomitant]
     Active Substance: VANCOMYCIN
     Indication: OSTEOMYELITIS
     Dosage: UNK
     Dates: end: 20170301
  12. DALACINE [Suspect]
     Active Substance: CLINDAMYCIN HYDROCHLORIDE
     Indication: OSTEOMYELITIS
     Dosage: 1800 MG, 1X/DAY
     Route: 042
     Dates: start: 20170301, end: 20170303
  13. LAROXYL [Suspect]
     Active Substance: AMITRIPTYLINE
     Indication: PROCEDURAL PAIN
     Dosage: UNK
     Route: 042
     Dates: start: 20170302, end: 20170303

REACTIONS (3)
  - Confusional state [Recovered/Resolved]
  - Myoclonus [Recovered/Resolved]
  - Hallucination, visual [Recovered/Resolved]

NARRATIVE: CASE EVENT DATE: 20170304
